FAERS Safety Report 23536749 (Version 3)
Quarter: 2024Q2

REPORT INFORMATION
  Report Type: Spontaneous
  Country: JP (occurrence: None)
  Receive Date: 20240219
  Receipt Date: 20240417
  Transmission Date: 20240716
  Serious: Yes (Hospitalization)
  Sender: FDA-Public Use
  Company Number: JP-ROCHE-3509459

PATIENT
  Age: 15 Year
  Sex: Female

DRUGS (2)
  1. XOFLUZA [Suspect]
     Active Substance: BALOXAVIR MARBOXIL
     Indication: Influenza
     Route: 048
     Dates: start: 20240129, end: 20240129
  2. BERBERINE\GERANIUM [Concomitant]
     Active Substance: BERBERINE\GERANIUM
     Indication: Influenza
     Route: 048
     Dates: start: 20240129, end: 20240130

REACTIONS (1)
  - Colitis ischaemic [Recovered/Resolved]

NARRATIVE: CASE EVENT DATE: 20240129
